FAERS Safety Report 25641282 (Version 1)
Quarter: 2025Q3

REPORT INFORMATION
  Report Type: Spontaneous
  Country: CN (occurrence: CN)
  Receive Date: 20250804
  Receipt Date: 20250804
  Transmission Date: 20251021
  Serious: Yes (Hospitalization, Other)
  Sender: DAITO PHARMACEUTICALS
  Company Number: CN-Daito Pharmaceutical Co., Ltd.-2181801

PATIENT
  Age: 48 Year
  Sex: Female

DRUGS (4)
  1. METHOTREXATE SODIUM [Suspect]
     Active Substance: METHOTREXATE SODIUM
     Indication: Diffuse large B-cell lymphoma
     Dates: start: 20240412
  2. METHOTREXATE SODIUM [Suspect]
     Active Substance: METHOTREXATE SODIUM
     Indication: Central nervous system lymphoma
  3. TISLELIZUMAB [Suspect]
     Active Substance: TISLELIZUMAB
     Dates: start: 20240412
  4. ZANUBRUTINIB [Suspect]
     Active Substance: ZANUBRUTINIB
     Dates: start: 20240412

REACTIONS (1)
  - Capillary leak syndrome [Recovered/Resolved]
